FAERS Safety Report 6405212-3 (Version None)
Quarter: 2009Q4

REPORT INFORMATION
  Report Type: 
  Country: None (occurrence: None)
  Receive Date: 20091019
  Receipt Date: 20091006
  Transmission Date: 20100525
  Serious: Yes (Other)
  Sender: FDA-Public Use
  Company Number: PHHY2009BR43406

PATIENT
  Age: 42 Year
  Sex: Female

DRUGS (4)
  1. TRILEPTAL [Suspect]
     Dosage: 600MG
     Dates: start: 20090301
  2. CARBAMAZEPINE [Suspect]
     Indication: CONVULSION
     Dosage: 200MG
  3. CARBAMAZEPINE [Suspect]
     Dosage: 400MG DAILY
  4. CARBAMAZEPINE [Suspect]
     Dosage: 800MG DAILY
     Dates: start: 20090301

REACTIONS (6)
  - ABDOMINAL PAIN UPPER [None]
  - DIZZINESS [None]
  - HEADACHE [None]
  - HEPATOTOXICITY [None]
  - MALAISE [None]
  - SOMNOLENCE [None]
